FAERS Safety Report 10021407 (Version 2)
Quarter: 2014Q4

REPORT INFORMATION
  Report Type: Spontaneous
  Country: US (occurrence: US)
  Receive Date: 20140319
  Receipt Date: 20141023
  Transmission Date: 20150528
  Serious: Yes (Hospitalization)
  Sender: FDA-Public Use
  Company Number: US-BEH-2014041146

PATIENT
  Age: 23 Year
  Sex: Female

DRUGS (1)
  1. HIZENTRA [Suspect]
     Active Substance: HUMAN IMMUNOGLOBULIN G

REACTIONS (2)
  - Pneumonia [Unknown]
  - Pneumonia [Unknown]

NARRATIVE: CASE EVENT DATE: 201404
